FAERS Safety Report 8159649-5 (Version None)
Quarter: 2012Q1

REPORT INFORMATION
  Report Type: 
  Country: None (occurrence: None)
  Receive Date: 20120216
  Receipt Date: 20120131
  Transmission Date: 20120608
  Serious: Yes (Hospitalization, Other)
  Sender: FDA-Public Use
  Company Number: DSA_48957_2012

PATIENT
  Sex: Male

DRUGS (6)
  1. ENALAPRIL MALEATE [Suspect]
     Indication: PRODUCT USED FOR UNKNOWN INDICATION
     Dosage: 5 MG, ORAL
     Route: 048
     Dates: start: 20040223, end: 20120106
  2. LEVOFLOXACIN [Concomitant]
  3. PL-GRANULES [Concomitant]
  4. ISODINE [Concomitant]
  5. ETHINYL ESTRADIOL [Concomitant]
  6. DEXAMETHASONE ACETATE [Concomitant]

REACTIONS (5)
  - CEREBRAL INFARCTION [None]
  - TONGUE OEDEMA [None]
  - ANGIOEDEMA [None]
  - NASOPHARYNGITIS [None]
  - DYSPNOEA [None]
